FAERS Safety Report 8425413-2 (Version None)
Quarter: 2012Q2

REPORT INFORMATION
  Report Type: 
  Country: None (occurrence: None)
  Receive Date: 20120604
  Receipt Date: 20120522
  Transmission Date: 20120825
  Serious: Yes (Other)
  Sender: FDA-Public Use
  Company Number: AUR-APL-2012-02417

PATIENT
  Age: 58 Year
  Sex: Male
  Weight: 110 kg

DRUGS (3)
  1. RAMIPRIL [Suspect]
     Indication: HYPERTENSION
     Dosage: 10;20 MG, ORAL
     Route: 048
     Dates: start: 20100701, end: 20111101
  2. NEUPRO [Concomitant]
  3. CARVEDILOL [Concomitant]

REACTIONS (2)
  - CONDITION AGGRAVATED [None]
  - RESTLESS LEGS SYNDROME [None]
